FAERS Safety Report 4430603-X (Version None)
Quarter: 2004Q3

REPORT INFORMATION
  Report Type: 
  Country: None (occurrence: None)
  Receive Date: 20040818
  Receipt Date: 20040903
  Transmission Date: 20050211
  Serious: No
  Sender: FDA-Public Use
  Company Number: 03P-167-0245844-00

PATIENT

DRUGS (8)
  1. HUMIRA [Suspect]
     Indication: RHEUMATOID ARTHRITIS
     Dosage: 40 MG, 1 IN 2 WK, SUBCUTANEOUS
     Route: 058
     Dates: start: 20021201
  2. IMIPRAM TAB [Concomitant]
  3. METHOTREXATE [Concomitant]
  4. PREDNISOLONE [Concomitant]
  5. LANSOPRAZOLE [Concomitant]
  6. MELOXICAM [Concomitant]
  7. FOLIC ACID [Concomitant]
  8. CALCIUM CARBONATE [Concomitant]

REACTIONS (2)
  - NASOPHARYNGEAL DISORDER [None]
  - PEMPHIGUS [None]
